FAERS Safety Report 7769878-8 (Version None)
Quarter: 2011Q3

REPORT INFORMATION
  Report Type: 
  Country: None (occurrence: None)
  Receive Date: 20110922
  Receipt Date: 20110915
  Transmission Date: 20111222
  Serious: Yes (Death, Hospitalization)
  Sender: FDA-Public Use
  Company Number: DE-AMGEN-DEUSP2011032256

PATIENT
  Sex: Female

DRUGS (9)
  1. LORMETAZEPAM [Concomitant]
     Indication: INSOMNIA
     Dosage: 1 MG, QD
  2. METAMIZOL                          /06276702/ [Concomitant]
     Indication: MUSCULOSKELETAL PAIN
  3. D3 CALCIO [Concomitant]
     Indication: OSTEOPOROSIS
  4. TORSEMIDE [Concomitant]
     Indication: CARDIAC FAILURE
     Dosage: 10 MG, QD
     Route: 048
     Dates: start: 20110419
  5. PROLIA [Suspect]
     Indication: OSTEOPOROSIS POSTMENOPAUSAL
     Dosage: 60 MG, UNK
     Dates: start: 20110421, end: 20110421
  6. ASPIRIN [Concomitant]
     Indication: PERIPHERAL ARTERIAL OCCLUSIVE DISEASE
     Dosage: 100 MG, QD
     Route: 048
  7. OMEPRAZOLE [Concomitant]
     Indication: DYSPEPSIA
     Dosage: 20 MG, QD
     Route: 048
  8. DICLOFENAC SODIUM [Concomitant]
     Indication: MUSCULOSKELETAL PAIN
     Dosage: 150 MG, QD
     Route: 048
  9. SIMVASTATIN [Concomitant]
     Indication: HYPERCHOLESTEROLAEMIA
     Dosage: 20 MG, QD

REACTIONS (3)
  - ENDOCARDITIS [None]
  - DEATH [None]
  - HOSPITALISATION [None]
